FAERS Safety Report 9852019 (Version 2)
Quarter: 2014Q1

REPORT INFORMATION
  Report Type: Spontaneous
  Country: US (occurrence: US)
  Receive Date: 20140129
  Receipt Date: 20140131
  Transmission Date: 20141002
  Serious: No
  Sender: FDA-Public Use
  Company Number: US-PFIZER INC-2014021393

PATIENT
  Sex: 0

DRUGS (14)
  1. CRIZOTINIB [Suspect]
     Indication: ADENOCARCINOMA
     Dosage: FOR 8 DAYS
  2. CRIZOTINIB [Suspect]
     Indication: NASOPHARYNGEAL CANCER
     Dosage: FOR 5 DAYS
  3. CRIZOTINIB [Suspect]
     Dosage: FOR 17 DAYS
  4. DOXORUBICIN HCL [Suspect]
     Indication: ADENOCARCINOMA
     Dosage: FOR 3 WEEKS
  5. DOXORUBICIN HCL [Suspect]
     Indication: NASOPHARYNGEAL CANCER
  6. TORISEL [Suspect]
     Indication: ADENOCARCINOMA
     Dosage: FOR 18 WEEKS
  7. TORISEL [Suspect]
     Indication: NASOPHARYNGEAL CANCER
     Dosage: FOR 3 WEEKS
  8. TORISEL [Suspect]
     Dosage: FOR 7 WEEKS
  9. REMICADE [Suspect]
     Indication: ADENOCARCINOMA
     Dosage: FOR 18 WEEKS
  10. REMICADE [Suspect]
     Indication: NASOPHARYNGEAL CANCER
  11. PAZOPANIB [Suspect]
     Indication: ADENOCARCINOMA
     Dosage: FOR 6 WEEKS
  12. PAZOPANIB [Suspect]
     Indication: NASOPHARYNGEAL CANCER
     Dosage: FOR 5 DAYS
  13. CARBOPLATIN [Suspect]
     Indication: ADENOCARCINOMA
     Dosage: FOR 9 WEEKS
  14. CARBOPLATIN [Suspect]
     Indication: NASOPHARYNGEAL CANCER

REACTIONS (3)
  - Disease progression [Unknown]
  - Nasopharyngeal cancer [Unknown]
  - Off label use [Unknown]
